FAERS Safety Report 13125829 (Version 6)
Quarter: 2017Q1

REPORT INFORMATION
  Report Type: Report from Study
  Country: US (occurrence: US)
  Receive Date: 20170118
  Receipt Date: 20170214
  Transmission Date: 20170428
  Serious: Yes (Death, Hospitalization, Disabling, Other)
  Sender: FDA-Public Use
  Company Number: US-GILEAD-2017-0252067

PATIENT
  Age: 83 Year
  Sex: Male

DRUGS (4)
  1. REVATIO [Concomitant]
     Active Substance: SILDENAFIL CITRATE
  2. AMBRISENTAN [Suspect]
     Active Substance: AMBRISENTAN
     Indication: PRODUCT USED FOR UNKNOWN INDICATION
     Dosage: 5 MG, QD
     Route: 065
     Dates: start: 20120829
  3. OXYGEN. [Concomitant]
     Active Substance: OXYGEN
  4. TYVASO [Concomitant]
     Active Substance: TREPROSTINIL

REACTIONS (14)
  - Cough [Unknown]
  - Anaemia [Unknown]
  - Candida infection [Unknown]
  - Walking aid user [Unknown]
  - Upper respiratory tract infection [Unknown]
  - Unevaluable event [Unknown]
  - Dyspnoea [Unknown]
  - Gastrointestinal haemorrhage [Unknown]
  - Asthenia [Not Recovered/Not Resolved]
  - Pneumonia [Unknown]
  - Unevaluable event [Unknown]
  - Death [Fatal]
  - Abasia [Unknown]
  - Muscular weakness [Unknown]

NARRATIVE: CASE EVENT DATE: 20170124
